FAERS Safety Report 9123456 (Version 1)
Quarter: 2013Q1

REPORT INFORMATION
  Report Type: Report from Study
  Country: BE (occurrence: BE)
  Receive Date: 20130115
  Receipt Date: 20130115
  Transmission Date: 20140127
  Serious: Yes (Hospitalization)
  Sender: FDA-Public Use
  Company Number: BE-PFIZER INC-2013013676

PATIENT
  Age: 78 Year
  Sex: Male
  Weight: 80 kg

DRUGS (8)
  1. IRINOTECAN HCL [Suspect]
     Indication: COLORECTAL CANCER METASTATIC
     Dosage: 357.91 MG,  IN 2 WK
     Route: 042
     Dates: start: 20111208
  2. FLUOROURACIL [Suspect]
     Indication: COLORECTAL CANCER METASTATIC
     Dosage: 5567 MG, IN 2 WK
     Route: 042
     Dates: start: 20111208
  3. BEVACIZUMAB [Suspect]
     Indication: COLORECTAL CANCER METASTATIC
     Dosage: 400 MG, 1 IN 2 WK
     Route: 042
     Dates: start: 20111208
  4. EMCONCOR [Concomitant]
     Indication: HYPERTENSION
     Dosage: 5 MG, 1X/DAY
     Route: 048
     Dates: start: 201009
  5. ASAFLOW [Concomitant]
     Indication: HYPERTENSION
     Dosage: 80 MG, 1X/DAY
     Route: 048
     Dates: start: 200801
  6. ZESTRIL [Concomitant]
     Indication: HYPERTENSION
     Dosage: 20 MG, 1X/DAY
     Route: 048
     Dates: start: 201112
  7. BURINEX [Concomitant]
     Indication: HYPERTENSION
     Dosage: 1 MG, 1X/DAY
     Route: 048
     Dates: start: 200801
  8. BISOPROLOL [Concomitant]
     Indication: HYPERTENSION
     Dosage: 5 MG, 1X/DAY
     Route: 048
     Dates: start: 201009

REACTIONS (7)
  - Diarrhoea [Recovered/Resolved]
  - Vomiting [Unknown]
  - Dehydration [Recovered/Resolved]
  - Neutropenia [Recovered/Resolved]
  - Renal failure [Not Recovered/Not Resolved]
  - Escherichia sepsis [Recovered/Resolved]
  - Atrial fibrillation [Not Recovered/Not Resolved]
